FAERS Safety Report 25519003 (Version 4)
Quarter: 2025Q3

REPORT INFORMATION
  Report Type: Report from Study
  Country: SG (occurrence: CN)
  Receive Date: 20250704
  Receipt Date: 20250828
  Transmission Date: 20251021
  Serious: Yes (Hospitalization)
  Sender: Unknown Manufacturer
  Company Number: SG-MIRUM PHARMACEUTICALS, INC.-CN-MIR-25-00407

PATIENT

DRUGS (12)
  1. MARALIXIBAT [Suspect]
     Active Substance: MARALIXIBAT
     Indication: Progressive familial intrahepatic cholestasis
     Dosage: 0.4 MILLILITER, BID
     Route: 048
     Dates: start: 20240528, end: 20250502
  2. MARALIXIBAT [Suspect]
     Active Substance: MARALIXIBAT
     Dosage: 0.25 MILLILITER, QD
     Route: 048
     Dates: start: 20240410, end: 20240429
  3. MARALIXIBAT [Suspect]
     Active Substance: MARALIXIBAT
     Dosage: 0.25 MILLILITER, BID
     Route: 048
     Dates: start: 20240430
  4. MARALIXIBAT [Suspect]
     Active Substance: MARALIXIBAT
     Dosage: 0.3 MILLILITER, BID
     Route: 048
     Dates: start: 20240514
  5. IRON [Concomitant]
     Active Substance: IRON
     Indication: Product used for unknown indication
     Dosage: 50 MILLIGRAM, QD
     Route: 048
  6. RIFAMPIN [Concomitant]
     Active Substance: RIFAMPIN
     Indication: Product used for unknown indication
     Dosage: 90 MILLIGRAM, QD
     Route: 048
  7. ASPIRIN [Concomitant]
     Active Substance: ASPIRIN
     Indication: Product used for unknown indication
     Dosage: 15 MILLIGRAM, QD
     Route: 048
  8. URSODIOL [Concomitant]
     Active Substance: URSODIOL
     Indication: Product used for unknown indication
     Dosage: 135 MILLIGRAM, BID
     Route: 048
  9. VITAMIN A [Concomitant]
     Active Substance: VITAMIN A
     Indication: Product used for unknown indication
     Dosage: 135 MILLIGRAM, BID
     Route: 048
  10. VITAMIN D NOS [Concomitant]
     Active Substance: CHOLECALCIFEROL\ERGOCALCIFEROL
     Indication: Product used for unknown indication
     Dosage: 200 MILLIGRAM, QD
     Route: 048
  11. .ALPHA.-TOCOPHEROL [Concomitant]
     Active Substance: .ALPHA.-TOCOPHEROL
     Indication: Product used for unknown indication
     Dosage: 135 MILLIGRAM, BID
     Route: 065
  12. VITAMIN K [Concomitant]
     Active Substance: PHYTONADIONE
     Indication: Product used for unknown indication
     Dosage: 135 MILLIGRAM, BID
     Route: 048

REACTIONS (2)
  - Biliary tract operation [Recovered/Resolved]
  - Liver transplant [Unknown]

NARRATIVE: CASE EVENT DATE: 20241227
